FAERS Safety Report 13980985 (Version 1)
Quarter: 2017Q3

REPORT INFORMATION
  Report Type: Spontaneous
  Country: US (occurrence: US)
  Receive Date: 20170918
  Receipt Date: 20170918
  Transmission Date: 20171128
  Serious: No
  Sender: FDA-Public Use
  Company Number: US-TEVA-766111ACC

PATIENT
  Age: 61 Year
  Sex: Male
  Weight: 104.31 kg

DRUGS (2)
  1. FEXOFENADINE 180MG TABLET [Suspect]
     Active Substance: FEXOFENADINE HYDROCHLORIDE
     Indication: SEASONAL ALLERGY
     Dosage: 180 MILLIGRAM DAILY;
     Route: 048
     Dates: start: 201704, end: 201704
  2. FEXOFENADINE 180MG TABLET [Suspect]
     Active Substance: FEXOFENADINE HYDROCHLORIDE
     Dosage: 180 MILLIGRAM DAILY;
     Route: 048
     Dates: start: 201704, end: 201704

REACTIONS (1)
  - Somnolence [Recovered/Resolved]

NARRATIVE: CASE EVENT DATE: 201704
